FAERS Safety Report 5454170-7 (Version None)
Quarter: 2007Q3

REPORT INFORMATION
  Report Type: 
  Country: None (occurrence: None)
  Receive Date: 20070917
  Receipt Date: 20070228
  Transmission Date: 20080115
  Serious: Yes (Hospitalization)
  Sender: FDA-Public Use
  Company Number: US-ASTRAZENECA-2006UW11356

PATIENT
  Sex: Female
  Weight: 114.1 kg

DRUGS (5)
  1. SEROQUEL [Suspect]
     Indication: SLEEP DISORDER
     Route: 048
     Dates: start: 19970101
  2. SEROQUEL [Suspect]
     Indication: DEPRESSION
     Route: 048
     Dates: start: 19970101
  3. ZOLOFT [Concomitant]
  4. DEPAKOTE [Concomitant]
  5. XANAX [Concomitant]

REACTIONS (2)
  - DEPRESSION [None]
  - DIABETES MELLITUS [None]
